FAERS Safety Report 8329423-5 (Version None)
Quarter: 2012Q2

REPORT INFORMATION
  Report Type: 
  Country: None (occurrence: None)
  Receive Date: 20120502
  Receipt Date: 20120418
  Transmission Date: 20120825
  Serious: Yes (Hospitalization)
  Sender: FDA-Public Use
  Company Number: CN-JNJFOC-20120413551

PATIENT
  Sex: Male
  Weight: 60 kg

DRUGS (1)
  1. KETOCONAZOLE [Suspect]
     Indication: ONYCHOMYCOSIS
     Route: 048
     Dates: start: 20101210, end: 20110110

REACTIONS (2)
  - INTENTIONAL DRUG MISUSE [None]
  - HEPATOTOXICITY [None]
